FAERS Safety Report 6466247-8 (Version None)
Quarter: 2009Q4

REPORT INFORMATION
  Report Type: 
  Country: None (occurrence: None)
  Receive Date: 20091202
  Receipt Date: 20091120
  Transmission Date: 20100525
  Serious: Yes (Hospitalization)
  Sender: FDA-Public Use
  Company Number: PHHY2008FR32994

PATIENT
  Age: 34 Year
  Sex: Female

DRUGS (2)
  1. TEGRETOL [Suspect]
     Indication: FACIAL NEURALGIA
     Dosage: 300 MG, BID
     Route: 048
     Dates: start: 20060101, end: 20090511
  2. ZOMETA [Suspect]
     Indication: DYSPLASIA
     Dosage: 1 DF BIANNUALLY
     Route: 042
     Dates: start: 20060101

REACTIONS (3)
  - PARAPSORIASIS [None]
  - PSORIASIS [None]
  - RASH PAPULAR [None]
